FAERS Safety Report 19221032 (Version 1)
Quarter: 2021Q2

REPORT INFORMATION
  Report Type: Spontaneous
  Country: JP (occurrence: JP)
  Receive Date: 20210505
  Receipt Date: 20210505
  Transmission Date: 20210717
  Serious: Yes (Other)
  Sender: FDA-Public Use
  Company Number: JP-FERRINGPH-2021FE02819

PATIENT
  Sex: Female

DRUGS (1)
  1. PROPESS [Suspect]
     Active Substance: DINOPROSTONE
     Indication: INDUCTION OF CERVIX RIPENING
     Route: 067

REACTIONS (1)
  - Amniotic cavity infection [Unknown]
